FAERS Safety Report 5822452-2 (Version None)
Quarter: 2008Q3

REPORT INFORMATION
  Report Type: 
  Country: None (occurrence: None)
  Receive Date: 20080725
  Receipt Date: 20080228
  Transmission Date: 20090109
  Serious: No
  Sender: FDA-Public Use
  Company Number: US-AMGEN-KDL265573

PATIENT
  Sex: Female
  Weight: 54.5 kg

DRUGS (13)
  1. PROCRIT [Suspect]
     Indication: RENAL FAILURE CHRONIC
     Dates: start: 20080123
  2. SPIRONOLACTONE [Concomitant]
  3. LASIX [Concomitant]
  4. ZAROXOLYN [Concomitant]
  5. VERAPAMIL [Concomitant]
  6. ZOCOR [Concomitant]
  7. LEXAPRO [Concomitant]
  8. ATENOLOL [Concomitant]
  9. ASPIRIN [Concomitant]
  10. AVAPRO [Concomitant]
  11. NITROGLYCERIN [Concomitant]
  12. REQUIP [Concomitant]
  13. SLOW-MAG [Concomitant]

REACTIONS (2)
  - ALOPECIA [None]
  - NIGHT SWEATS [None]
